FAERS Safety Report 8814359 (Version 2)
Quarter: 2012Q4

REPORT INFORMATION
  Report Type: Report from Study
  Country: US (occurrence: US)
  Receive Date: 20120928
  Receipt Date: 20121213
  Transmission Date: 20130627
  Serious: Yes (Hospitalization)
  Sender: FDA-Public Use
  Company Number: US-BRISTOL-MYERS SQUIBB COMPANY-16978504

PATIENT
  Sex: Male

DRUGS (2)
  1. IPILIMUMAB [Suspect]
     Indication: METASTATIC MALIGNANT MELANOMA
     Dosage: Every 3 weeks induction *4 then every 12 weeks
1110 mg
     Route: 042
     Dates: start: 20110323
  2. TEMOZOLOMIDE [Suspect]
     Indication: METASTATIC MALIGNANT MELANOMA
     Dosage: 4days every 3 weeks induction *4 then 5 days every 4 weeks
460mg
     Dates: start: 20110425

REACTIONS (4)
  - Sepsis [Unknown]
  - Myocardial infarction [Unknown]
  - Pneumonia [Unknown]
  - Diarrhoea [Unknown]
